FAERS Safety Report 5829548-X (Version None)
Quarter: 2008Q3

REPORT INFORMATION
  Report Type: 
  Country: None (occurrence: None)
  Receive Date: 20080731
  Receipt Date: 20080722
  Transmission Date: 20090109
  Serious: Yes (Hospitalization)
  Sender: FDA-Public Use
  Company Number: FR-PFIZER INC-2008061612

PATIENT
  Sex: Male

DRUGS (4)
  1. SOLU-MEDROL [Suspect]
     Indication: PREMEDICATION
     Route: 042
     Dates: start: 20080618, end: 20080618
  2. ZOPHREN [Suspect]
     Indication: BILE DUCT CANCER
     Route: 042
     Dates: start: 20080618, end: 20080618
  3. GEMZAR [Suspect]
     Indication: BILE DUCT CANCER
     Route: 042
     Dates: start: 20080618, end: 20080618
  4. RANITIDINE HCL [Suspect]
     Indication: PREMEDICATION
     Dosage: TEXT:50 MG/2 ML DAILY  TDD:50 MG/2 ML
     Route: 042
     Dates: start: 20080618, end: 20080618

REACTIONS (2)
  - ANGINA PECTORIS [None]
  - MALAISE [None]
